FAERS Safety Report 24248227 (Version 2)
Quarter: 2025Q3

REPORT INFORMATION
  Report Type: Spontaneous
  Country: CA (occurrence: CA)
  Receive Date: 20240826
  Receipt Date: 20250806
  Transmission Date: 20251020
  Serious: Yes (Hospitalization)
  Sender: MYLAN
  Company Number: CA-MYLANLABS-2024M1078040

PATIENT
  Sex: Male

DRUGS (15)
  1. REVATIO [Suspect]
     Active Substance: SILDENAFIL CITRATE
     Indication: Fontan procedure
     Dosage: 40 MILLIGRAM, TID (THREE TIMES A DAY)
  2. REVATIO [Suspect]
     Active Substance: SILDENAFIL CITRATE
     Indication: Product used for unknown indication
     Dosage: 40 MILLIGRAM, TID (THREE TIMES A DAY)
     Dates: start: 20240822
  3. TINZAPARIN [Concomitant]
     Active Substance: TINZAPARIN
  4. NYSTATIN [Concomitant]
     Active Substance: NYSTATIN
  5. FUROSEMIDE [Concomitant]
     Active Substance: FUROSEMIDE
  6. DAPAGLIFLOZIN [Concomitant]
     Active Substance: DAPAGLIFLOZIN
  7. HYDROCORTISONE [Concomitant]
     Active Substance: HYDROCORTISONE
  8. LISINOPRIL [Concomitant]
     Active Substance: LISINOPRIL
  9. ALBUTEROL [Concomitant]
     Active Substance: ALBUTEROL
  10. FLOVENT [Concomitant]
     Active Substance: FLUTICASONE PROPIONATE
  11. BUDESONIDE [Concomitant]
     Active Substance: BUDESONIDE
  12. SPIRONOLACTONE [Concomitant]
     Active Substance: SPIRONOLACTONE
  13. CALCIUM CARBONATE [Concomitant]
     Active Substance: CALCIUM CARBONATE
  14. OMEPRAZOLE [Concomitant]
     Active Substance: OMEPRAZOLE
  15. VITAMIN D [Concomitant]
     Active Substance: VITAMIN D NOS

REACTIONS (3)
  - Stress fracture [Unknown]
  - Hospitalisation [Unknown]
  - Off label use [Unknown]
